FAERS Safety Report 7275960-4 (Version None)
Quarter: 2011Q1

REPORT INFORMATION
  Report Type: 
  Country: None (occurrence: None)
  Receive Date: 20110204
  Receipt Date: 20110127
  Transmission Date: 20110831
  Serious: Yes (Hospitalization)
  Sender: FDA-Public Use
  Company Number: A0911230A

PATIENT
  Age: 67 Year
  Sex: Female

DRUGS (5)
  1. NORCO [Concomitant]
  2. PAZOPANIB [Suspect]
     Indication: NON-SMALL CELL LUNG CANCER
     Dosage: 400MG PER DAY
     Route: 048
     Dates: start: 20110112
  3. VINORELBINE [Suspect]
     Indication: NON-SMALL CELL LUNG CANCER
     Route: 042
     Dates: start: 20110119
  4. METOCLOPRAMIDE [Concomitant]
  5. PROCHLORPERAZINE [Concomitant]

REACTIONS (8)
  - BLOOD CREATININE INCREASED [None]
  - ASTHENIA [None]
  - ABDOMINAL PAIN UPPER [None]
  - DEHYDRATION [None]
  - NEUTROPENIA [None]
  - DECREASED APPETITE [None]
  - BACK PAIN [None]
  - DYSPNOEA [None]
